FAERS Safety Report 7636098-7 (Version None)
Quarter: 2011Q3

REPORT INFORMATION
  Report Type: 
  Country: None (occurrence: None)
  Receive Date: 20110726
  Receipt Date: 20110715
  Transmission Date: 20111222
  Serious: Yes (Other)
  Sender: FDA-Public Use
  Company Number: ZA-JNJFOC-20110706978

PATIENT
  Sex: Female
  Weight: 60 kg

DRUGS (2)
  1. REVELLEX [Suspect]
     Indication: CROHN'S DISEASE
     Dosage: SECOND INFUSION
     Route: 042
     Dates: start: 20110715, end: 20110715
  2. REVELLEX [Suspect]
     Route: 042
     Dates: start: 20110107

REACTIONS (4)
  - DYSPNOEA [None]
  - RESTLESS LEGS SYNDROME [None]
  - HYPERHIDROSIS [None]
  - INFUSION RELATED REACTION [None]
